FAERS Safety Report 23423242 (Version 1)
Quarter: 2024Q1

REPORT INFORMATION
  Report Type: Spontaneous
  Country: US (occurrence: None)
  Receive Date: 20240119
  Receipt Date: 20240119
  Transmission Date: 20240410
  Serious: Yes (Hospitalization)
  Sender: FDA-Public Use
  Company Number: None

PATIENT
  Age: 63 Year
  Sex: Male

DRUGS (2)
  1. TEMOZOLOMIDE [Suspect]
     Active Substance: TEMOZOLOMIDE
     Indication: Brain neoplasm malignant
     Dosage: FREQUENCY : MONTHLY;?
     Route: 048
     Dates: start: 20231101
  2. TEMOZOLOMIDE [Suspect]
     Active Substance: TEMOZOLOMIDE
     Indication: Brain neoplasm malignant
     Dosage: FREQUENCY : MONTHLY;?
     Route: 048
     Dates: start: 20231101

REACTIONS (4)
  - Headache [None]
  - Blindness [None]
  - Brain oedema [None]
  - Noninfective encephalitis [None]

NARRATIVE: CASE EVENT DATE: 20240108
